FAERS Safety Report 7339445-9 (Version None)
Quarter: 2011Q1

REPORT INFORMATION
  Report Type: 
  Country: None (occurrence: None)
  Receive Date: 20110308
  Receipt Date: 20101229
  Transmission Date: 20110831
  Serious: No
  Sender: FDA-Public Use
  Company Number: US-AMGEN-USASP2010012226

PATIENT
  Sex: Female

DRUGS (6)
  1. DIOVAN [Concomitant]
  2. KLOR-CON [Concomitant]
     Dosage: UNK UNK, Q6MO
  3. VITAMIN A [Concomitant]
  4. PROLIA [Suspect]
     Indication: OSTEOPOROSIS POSTMENOPAUSAL
     Dosage: 60 MG, Q6MO
     Dates: start: 20101209
  5. SIMVASTATIN [Concomitant]
  6. SYNTHROID [Concomitant]

REACTIONS (2)
  - ARTHRALGIA [None]
  - MYALGIA [None]
